FAERS Safety Report 10566087 (Version 2)
Quarter: 2015Q1

REPORT INFORMATION
  Report Type: Spontaneous
  Country: US (occurrence: US)
  Receive Date: 20141105
  Receipt Date: 20150203
  Transmission Date: 20150720
  Serious: No
  Sender: FDA-Public Use
  Company Number: US-PFIZER INC-2014305024

PATIENT
  Age: 74 Year
  Sex: Female
  Weight: 70 kg

DRUGS (3)
  1. COREG CK [Concomitant]
     Indication: HYPERTENSION
     Dosage: 20 MG, 1X/DAY
  2. LASIX [Concomitant]
     Active Substance: FUROSEMIDE
     Indication: FLUID RETENTION
     Dosage: 40 MG, 1X/DAY, TABLET, 1 TIME PER DAY, BY MOUTH
     Route: 048
  3. GLUCOTROL XL [Suspect]
     Active Substance: GLIPIZIDE
     Indication: TYPE 2 DIABETES MELLITUS
     Dosage: 10 MG, 2X/DAY
     Route: 048

REACTIONS (8)
  - Abdominal distension [Not Recovered/Not Resolved]
  - Suspected counterfeit product [Unknown]
  - Malaise [Unknown]
  - Drug ineffective [Recovered/Resolved]
  - Weight decreased [Unknown]
  - Flatulence [Unknown]
  - Nausea [Not Recovered/Not Resolved]
  - Abdominal discomfort [Unknown]

NARRATIVE: CASE EVENT DATE: 201411
